FAERS Safety Report 18492386 (Version 3)
Quarter: 2021Q1

REPORT INFORMATION
  Report Type: Spontaneous
  Country: US (occurrence: US)
  Receive Date: 20201111
  Receipt Date: 20210203
  Transmission Date: 20210419
  Serious: No
  Sender: FDA-Public Use
  Company Number: US-PFIZER INC-2020439011

PATIENT
  Age: 83 Year
  Sex: Female
  Weight: 63.5 kg

DRUGS (5)
  1. PREMARIN [Suspect]
     Active Substance: ESTROGENS, CONJUGATED
     Indication: HORMONE THERAPY
     Dosage: 0.625 MG (ONCE A DAY, THREE TIMES A WEEK)
     Route: 048
  2. LISINOPRIL. [Concomitant]
     Active Substance: LISINOPRIL
     Indication: BLOOD PRESSURE ABNORMAL
     Dosage: 20 MG, 2X/DAY (ONE IN THE MORNING AND ONE IN THE EVENING WITH MY MEAL)
  3. FUROSEMIDE. [Concomitant]
     Active Substance: FUROSEMIDE
     Indication: BLOOD PRESSURE ABNORMAL
     Dosage: 20 MG, 1X/DAY
  4. XARELTO [Concomitant]
     Active Substance: RIVAROXABAN
     Indication: BLOOD PRESSURE ABNORMAL
     Dosage: 20 MG, 1X/DAY
  5. METOPROLOL. [Concomitant]
     Active Substance: METOPROLOL
     Indication: BLOOD PRESSURE ABNORMAL
     Dosage: 50 MG, 2X/DAY (IN THE MORNING AND AT DINNER TIME)

REACTIONS (9)
  - Heart rate abnormal [Recovered/Resolved]
  - Mediastinum neoplasm [Unknown]
  - Lung disorder [Unknown]
  - Hair colour changes [Unknown]
  - Intentional product misuse [Unknown]
  - Memory impairment [Unknown]
  - Tinnitus [Unknown]
  - Alopecia [Unknown]
  - Dyspnoea [Unknown]

NARRATIVE: CASE EVENT DATE: 2020
